FAERS Safety Report 6789457-9 (Version None)
Quarter: 2010Q2

REPORT INFORMATION
  Report Type: 
  Country: None (occurrence: None)
  Receive Date: 20100624
  Receipt Date: 20100330
  Transmission Date: 20101027
  Serious: Yes (Other)
  Sender: FDA-Public Use
  Company Number: US-ASTRAZENECA-2006UW08814

PATIENT
  Age: 506 Month
  Sex: Male
  Weight: 117.9 kg

DRUGS (18)
  1. SEROQUEL [Suspect]
     Indication: BIPOLAR DISORDER
     Route: 048
     Dates: start: 20020101
  2. SEROQUEL [Suspect]
     Route: 048
     Dates: end: 20021210
  3. RISPERDAL [Suspect]
     Indication: BIPOLAR DISORDER
     Dates: start: 20000101, end: 20040101
  4. RISPERDAL [Suspect]
     Dosage: 0.5 - 1 MG
     Dates: start: 20021016
  5. XANAX [Concomitant]
     Indication: ANXIETY
     Dosage: 0.5 - 1 MG
     Dates: start: 20040901
  6. XANAX [Concomitant]
     Indication: AFFECTIVE DISORDER
     Dosage: 0.5 - 1 MG
     Dates: start: 20040901
  7. HYZAAR [Concomitant]
     Indication: HYPERTENSION
     Dosage: 50 / 12.5, ONE A DAY
     Dates: start: 20021107
  8. TRAZODONE HYDROCHLORIDE [Concomitant]
     Dates: start: 20040114
  9. PROTONIX [Concomitant]
     Dates: start: 20040114
  10. NEURONTIN [Concomitant]
     Dosage: 300 - 800 MG
     Dates: start: 20040126
  11. LASIX [Concomitant]
     Indication: SWELLING
     Dates: start: 20040430
  12. COMBIVENT [Concomitant]
     Dosage: 2 PUFFS, TWICE DAILY
     Route: 055
     Dates: start: 20040114
  13. NORVASC [Concomitant]
     Dates: start: 20030114
  14. LIPITOR [Concomitant]
     Indication: DYSLIPIDAEMIA
     Dosage: 10-20 MG
     Dates: start: 20030124, end: 20040608
  15. TOPROL-XL [Concomitant]
     Dosage: 50 - 100 MG
     Dates: start: 20021016, end: 20040101
  16. PLAVIX [Concomitant]
     Dates: start: 20021016
  17. HYTRIN [Concomitant]
     Indication: BENIGN PROSTATIC HYPERPLASIA
     Dates: start: 20050615
  18. HYTRIN [Concomitant]
     Indication: HYPERTENSION
     Dates: start: 20050615

REACTIONS (8)
  - DIABETES MELLITUS [None]
  - DIABETIC COMPLICATION [None]
  - DIABETIC NEUROPATHY [None]
  - ERECTILE DYSFUNCTION [None]
  - GLUCOSE TOLERANCE IMPAIRED [None]
  - HYPERGLYCAEMIA [None]
  - NEUROPATHY PERIPHERAL [None]
  - TYPE 2 DIABETES MELLITUS [None]
